FAERS Safety Report 13189616 (Version 1)
Quarter: 2017Q1

REPORT INFORMATION
  Report Type: Spontaneous
  Country: NO (occurrence: NO)
  Receive Date: 20170206
  Receipt Date: 20170206
  Transmission Date: 20170428
  Serious: Yes (Life-Threatening, Hospitalization)
  Sender: FDA-Public Use
  Company Number: NO-LANNETT COMPANY, INC.-NO-2017LAN000450

PATIENT
  Age: 40 Year
  Sex: Female

DRUGS (2)
  1. ATORVASTATIN CALCIUM. [Concomitant]
     Active Substance: ATORVASTATIN CALCIUM
     Indication: PRODUCT USED FOR UNKNOWN INDICATION
     Dosage: 20 MG, QD
  2. OMEPRAZOLE. [Suspect]
     Active Substance: OMEPRAZOLE
     Indication: PRODUCT USED FOR UNKNOWN INDICATION
     Dosage: 20-40 MG, QD

REACTIONS (21)
  - Hypomagnesaemia [Recovered/Resolved]
  - Loss of consciousness [Unknown]
  - Nausea [Recovered/Resolved]
  - Troponin I increased [Recovered/Resolved]
  - Seizure [Unknown]
  - Glomerular filtration rate decreased [Recovered/Resolved]
  - Protein urine present [Recovered/Resolved]
  - Oliguria [Unknown]
  - Cyanosis [Unknown]
  - Palpitations [Recovered/Resolved]
  - Blood creatinine increased [Recovered/Resolved]
  - Diarrhoea [Unknown]
  - Cardiac arrest [Recovered/Resolved]
  - Dehydration [Unknown]
  - Torsade de pointes [Recovered/Resolved]
  - Acute kidney injury [Recovering/Resolving]
  - Fatigue [Recovered/Resolved]
  - Blood pressure systolic decreased [Recovered/Resolved]
  - Urinary casts present [Recovered/Resolved]
  - Sinus tachycardia [Recovered/Resolved]
  - Blood urea increased [Recovered/Resolved]
